FAERS Safety Report 9482235 (Version 3)
Quarter: 2014Q3

REPORT INFORMATION
  Report Type: Spontaneous
  Country: CH (occurrence: CH)
  Receive Date: 20130828
  Receipt Date: 20140821
  Transmission Date: 20150326
  Serious: Yes (Death, Other)
  Sender: FDA-Public Use
  Company Number: CH-JNJFOC-20130810585

PATIENT

DRUGS (4)
  1. CLOPIDOGREL [Concomitant]
     Active Substance: CLOPIDOGREL BISULFATE
     Indication: ANTIPLATELET THERAPY
     Route: 048
  2. ABCIXIMAB [Suspect]
     Active Substance: ABCIXIMAB
     Indication: ANGIOPLASTY
     Dosage: DOSE OF 0.25 MG/KG, FOLLOWED BY A MAINTENANCE PERFUSION AT A DOSAGE 0.125 UG/KG/MIN OVER 12 HOURS.
     Route: 042
  3. ASA [Concomitant]
     Active Substance: ASPIRIN
     Indication: ANTIPLATELET THERAPY
     Dosage: 250 TO 500 MG
     Route: 048
  4. ASA [Concomitant]
     Active Substance: ASPIRIN
     Indication: ANTIPLATELET THERAPY
     Dosage: 250 TO 500 MG
     Route: 042

REACTIONS (2)
  - Myocardial infarction [Unknown]
  - Cardiac death [Fatal]
